FAERS Safety Report 4450112-1 (Version None)
Quarter: 2004Q3

REPORT INFORMATION
  Report Type: 
  Country: None (occurrence: None)
  Receive Date: 20040804
  Receipt Date: 20040211
  Transmission Date: 20050211
  Serious: Yes (Other)
  Sender: FDA-Public Use
  Company Number: 204697

PATIENT
  Age: 36 Year
  Sex: Female

DRUGS (1)
  1. HERCEPTIN [Suspect]
     Indication: INFLAMMATORY CARCINOMA OF THE BREAST
     Dosage: 2 MG/KG, 3/MONTH, INTRAVENOUS
     Route: 042
     Dates: start: 20030201

REACTIONS (1)
  - EJECTION FRACTION DECREASED [None]
